FAERS Safety Report 15804652 (Version 2)
Quarter: 2021Q4

REPORT INFORMATION
  Report Type: Spontaneous
  Country: US (occurrence: US)
  Receive Date: 20190109
  Receipt Date: 20211217
  Transmission Date: 20220304
  Serious: Yes (Hospitalization)
  Sender: FDA-Public Use
  Company Number: US-009507513-1901USA001978

PATIENT
  Sex: Female

DRUGS (7)
  1. PROVENTIL [Suspect]
     Active Substance: ALBUTEROL
     Indication: Asthma
     Dosage: 2 PUFFS (STRENGTH 90 MICROGRAM) 4-6 TIMES PER DAY
     Route: 055
     Dates: start: 1980, end: 1990
  2. PROVENTIL [Suspect]
     Active Substance: ALBUTEROL
     Indication: Respiratory disorder
  3. VENTOLIN [Suspect]
     Active Substance: ALBUTEROL SULFATE
     Indication: Respiration abnormal
     Dosage: UNK, ONCE PER DAY FOR 2 DAYS
     Dates: start: 1980, end: 1990
  4. PROAIR HFA [Suspect]
     Active Substance: ALBUTEROL SULFATE
     Dosage: ONE DOSE PER DAY FOR 4 DAYS
  5. CITALOPRAM [Concomitant]
     Active Substance: CITALOPRAM HYDROBROMIDE
  6. ALPRAZOLAM [Concomitant]
     Active Substance: ALPRAZOLAM
  7. CETIRIZINE HYDROCHLORIDE [Concomitant]
     Active Substance: CETIRIZINE HYDROCHLORIDE

REACTIONS (3)
  - Dyspnoea [Not Recovered/Not Resolved]
  - Drug ineffective [Unknown]
  - Wheezing [Not Recovered/Not Resolved]

NARRATIVE: CASE EVENT DATE: 19800101
